FAERS Safety Report 7357821 (Version 2)
Quarter: 2014Q3

REPORT INFORMATION
  Report Type: Spontaneous
  Country: US (occurrence: None)
  Receive Date: 20100401
  Receipt Date: 20140829
  Transmission Date: 20150326
  Serious: Yes (Hospitalization, Other)
  Sender: FDA-Public Use
  Company Number: 2010S1001748

PATIENT
  Age: 66 Year
  Sex: Male

DRUGS (9)
  1. LISINOPRIL. [Concomitant]
     Active Substance: LISINOPRIL
  2. MYLANTA GAS MAXIMUM STRENGTH [Suspect]
     Active Substance: DIMETHICONE
  3. PHOSPHO-SODA [Suspect]
     Active Substance: SODIUM PHOSPHATE, DIBASIC\SODIUM PHOSPHATE, MONOBASIC
     Indication: COLONOSCOPY
     Dosage: 1 IN, ORAL
     Route: 048
     Dates: start: 20040513, end: 20040514
  4. ATENOLOL. [Concomitant]
     Active Substance: ATENOLOL
  5. METOPROLOL TARTRATE. [Concomitant]
     Active Substance: METOPROLOL TARTRATE
  6. ASPIRIN (ACETYLSALICYLIC ACID) [Concomitant]
     Active Substance: ASPIRIN
  7. SULFASALAZINE (SULFASALAZINE) [Concomitant]
     Active Substance: SULFASALAZINE
  8. ASACOL [Concomitant]
     Active Substance: MESALAMINE
  9. SIMVASTATIN (SIMVASTATIN) [Concomitant]
     Active Substance: SIMVASTATIN

REACTIONS (21)
  - Renal failure acute [None]
  - Azotaemia [None]
  - Diarrhoea [None]
  - Inflammatory bowel disease [None]
  - Dehydration [None]
  - Arteriosclerosis [None]
  - Tubulointerstitial nephritis [None]
  - Haemoglobin decreased [None]
  - Renal disorder [None]
  - Hypovolaemia [None]
  - Nephropathy toxic [None]
  - Muscle spasms [None]
  - Rectal polyp [None]
  - Asthenia [None]
  - Fatigue [None]
  - Renal tubular necrosis [None]
  - Cardiac failure congestive [None]
  - Renal impairment [None]
  - Polyp [None]
  - Decreased appetite [None]
  - Renal artery stenosis [None]

NARRATIVE: CASE EVENT DATE: 200405
